FAERS Safety Report 8029408-2 (Version None)
Quarter: 2012Q1

REPORT INFORMATION
  Report Type: 
  Country: None (occurrence: None)
  Receive Date: 20120106
  Receipt Date: 20120103
  Transmission Date: 20120608
  Serious: Yes (Hospitalization)
  Sender: FDA-Public Use
  Company Number: AU-ASTRAZENECA-2012SE00283

PATIENT
  Age: 67 Year
  Sex: Male

DRUGS (1)
  1. ZOLADEX [Suspect]
     Route: 058
     Dates: start: 20101029, end: 20120103

REACTIONS (3)
  - BLOOD GLUCOSE INCREASED [None]
  - WEIGHT INCREASED [None]
  - HOT FLUSH [None]
